FAERS Safety Report 12210060 (Version 1)
Quarter: 2016Q1

REPORT INFORMATION
  Report Type: Spontaneous
  Country: US (occurrence: None)
  Receive Date: 20160324
  Receipt Date: 20160324
  Transmission Date: 20160526
  Serious: Yes (Other)
  Sender: FDA-Public Use
  Company Number: None

PATIENT
  Age: 37 Year
  Sex: Female

DRUGS (1)
  1. HUMIRA [Suspect]
     Active Substance: ADALIMUMAB
     Indication: CROHN^S DISEASE
     Dosage: INJECTABLE??7/1/2015, OFF 7/14/15, ON END OF
     Route: 058
     Dates: start: 20150701

REACTIONS (3)
  - Hospitalisation [None]
  - Clostridium difficile infection [None]
  - Therapy cessation [None]

NARRATIVE: CASE EVENT DATE: 20150714
